FAERS Safety Report 7833942-5 (Version None)
Quarter: 2011Q4

REPORT INFORMATION
  Report Type: 
  Country: None (occurrence: None)
  Receive Date: 20111024
  Receipt Date: 20110822
  Transmission Date: 20120403
  Serious: Yes (Hospitalization)
  Sender: FDA-Public Use
  Company Number: US-EISAI INC-E2080-00405-SPO-US

PATIENT
  Age: 17 Year
  Sex: Female
  Weight: 36.6 kg

DRUGS (7)
  1. BANZEL [Suspect]
     Route: 048
     Dates: start: 20110801, end: 20110820
  2. BANZEL [Suspect]
     Route: 048
     Dates: start: 20110822, end: 20110822
  3. BANZEL [Suspect]
     Indication: EPILEPSY
     Route: 048
     Dates: start: 20110719, end: 20110801
  4. KEPPRA [Concomitant]
     Route: 048
  5. BACLOFEN [Concomitant]
     Route: 048
  6. CLONAZEPAM [Concomitant]
     Route: 048
  7. BANZEL [Suspect]
     Route: 048
     Dates: start: 20110823

REACTIONS (2)
  - EXCESSIVE EYE BLINKING [None]
  - CHOREA [None]
